FAERS Safety Report 8810444 (Version 1)
Quarter: 2012Q4

REPORT INFORMATION
  Report Type: 
  Country: US (occurrence: US)
  Receive Date: 20120927
  Receipt Date: 20120927
  Transmission Date: 20130627
  Serious: No
  Sender: FDA-Public Use
  Company Number: US-009507513-1209USA006904

PATIENT
  Sex: Female

DRUGS (1)
  1. SAPHRIS [Suspect]
     Indication: SCHIZOPHRENIA
     Dosage: 5 mg, bid
     Route: 060
     Dates: end: 2012

REACTIONS (2)
  - Muscle tightness [Recovered/Resolved]
  - Throat tightness [Recovered/Resolved]
